FAERS Safety Report 8578454-9 (Version None)
Quarter: 2012Q3

REPORT INFORMATION
  Report Type: 
  Country: None (occurrence: None)
  Receive Date: 20120808
  Receipt Date: 20120730
  Transmission Date: 20120928
  Serious: Yes (Hospitalization)
  Sender: FDA-Public Use
  Company Number: US-BAYER-2012-041773

PATIENT
  Sex: Female
  Weight: 63 kg

DRUGS (8)
  1. ASCORBIC ACID [Concomitant]
  2. MULTI-VITAMIN [Concomitant]
     Dosage: UNK
     Dates: start: 19950101
  3. ALBUTEROL [Concomitant]
  4. POTASSIUM [Concomitant]
     Dosage: UNK
     Dates: start: 20100101, end: 20110101
  5. CLEOCIN HYDROCHLORIDE [Concomitant]
     Dosage: UNK
     Dates: start: 20100101, end: 20110101
  6. YAZ [Suspect]
     Indication: CONTRACEPTION
     Dosage: UNK
     Dates: start: 20100201, end: 20100601
  7. YAZ [Suspect]
     Indication: MENSTRUAL CYCLE MANAGEMENT
  8. NSAID'S [Concomitant]
     Dosage: UNK UNK, PRN

REACTIONS (11)
  - IMPAIRED GASTRIC EMPTYING [None]
  - ABDOMINAL DISCOMFORT [None]
  - INJURY [None]
  - PSYCHOLOGICAL TRAUMA [None]
  - EMOTIONAL DISTRESS [None]
  - ANXIETY [None]
  - GALLBLADDER DISORDER [None]
  - VOMITING [None]
  - ABDOMINAL DISTENSION [None]
  - WEIGHT DECREASED [None]
  - PAIN [None]
